FAERS Safety Report 24583802 (Version 1)
Quarter: 2024Q4

REPORT INFORMATION
  Report Type: Spontaneous
  Country: US (occurrence: US)
  Receive Date: 20241106
  Receipt Date: 20241106
  Transmission Date: 20250115
  Serious: Yes (Hospitalization)
  Sender: AMGEN
  Company Number: US-AMGEN-USASP2024215279

PATIENT
  Age: 62 Year
  Sex: Female

DRUGS (2)
  1. TRASTUZUMAB [Suspect]
     Active Substance: TRASTUZUMAB
     Indication: HER2 positive breast cancer
     Dosage: UNK
     Route: 065
  2. PERTUZUMAB [Suspect]
     Active Substance: PERTUZUMAB
     Indication: HER2 positive breast cancer
     Route: 065

REACTIONS (7)
  - Appendicitis perforated [Unknown]
  - Appendiceal abscess [Unknown]
  - Serositis [Unknown]
  - Cholelithiasis [Unknown]
  - Cholecystitis chronic [Unknown]
  - Bacteraemia [Recovered/Resolved]
  - Off label use [Unknown]
